FAERS Safety Report 4908499-9 (Version None)
Quarter: 2006Q1

REPORT INFORMATION
  Report Type: 
  Country: None (occurrence: None)
  Receive Date: 20060210
  Receipt Date: 20050808
  Transmission Date: 20060701
  Serious: No
  Sender: FDA-Public Use
  Company Number: US-GLAXOSMITHKLINE-A0569234A

PATIENT
  Sex: Female

DRUGS (5)
  1. PAXIL CR [Suspect]
     Dosage: 25MG PER DAY
     Route: 048
     Dates: start: 20050801, end: 20050801
  2. VALIUM [Concomitant]
  3. ALBUTEROL [Concomitant]
  4. VITAMINS [Concomitant]
  5. HRT [Concomitant]

REACTIONS (8)
  - ANGER [None]
  - CHEST PAIN [None]
  - DEPRESSION [None]
  - DISTURBANCE IN ATTENTION [None]
  - DIZZINESS [None]
  - DYSPNOEA [None]
  - PANIC ATTACK [None]
  - TREMOR [None]
